FAERS Safety Report 8454936-5 (Version None)
Quarter: 2012Q2

REPORT INFORMATION
  Report Type: 
  Country: None (occurrence: None)
  Receive Date: 20120621
  Receipt Date: 20120618
  Transmission Date: 20120825
  Serious: No
  Sender: FDA-Public Use
  Company Number: US-PFIZER INC-2012146878

PATIENT
  Sex: Female
  Weight: 63.492 kg

DRUGS (13)
  1. LYRICA [Suspect]
     Indication: SCIATICA
     Dosage: 50 MG, 3X/DAY
     Route: 048
     Dates: start: 20120201, end: 20120101
  2. ASCORBIC ACID [Concomitant]
     Dosage: UNK, 2X/DAY
  3. IRON [Concomitant]
     Dosage: UNK, DAILY
  4. OMEPRAZOLE [Concomitant]
     Dosage: 20 MG, DAILY
  5. TRAMADOL [Concomitant]
     Dosage: 50 MG, DAILY
  6. CALCIUM W/COLECALCIFEROL [Concomitant]
     Dosage: UNK,  DAILY
  7. VITAMIN B-12 [Concomitant]
     Dosage: UNK,  DAILY
  8. BACLOFEN [Concomitant]
     Dosage: 20 MG, 3X/DAY
  9. HYDROCHLOROTHIAZIDE [Concomitant]
     Dosage: 50 MG, DAILY
  10. WARFARIN [Concomitant]
     Dosage: UNK,  DAILY
  11. FISH OIL [Concomitant]
     Dosage: UNK, 2X/DAY
  12. MAGNESIUM [Concomitant]
     Dosage: UNK, DAILY
  13. HYDROCODONE [Concomitant]
     Dosage: UNK, 2X/DAY

REACTIONS (5)
  - SENSATION OF HEAVINESS [None]
  - MUSCLE TIGHTNESS [None]
  - NERVOUS SYSTEM DISORDER [None]
  - NEURALGIA [None]
  - DRUG INEFFECTIVE [None]
